FAERS Safety Report 20307516 (Version 1)
Quarter: 2022Q1

REPORT INFORMATION
  Report Type: Spontaneous
  Country: SE (occurrence: SE)
  Receive Date: 20220107
  Receipt Date: 20220107
  Transmission Date: 20220423
  Serious: Yes (Other)
  Sender: FDA-Public Use
  Company Number: SE-MPA-1616064331863

PATIENT
  Age: 46 Year
  Sex: Female

DRUGS (6)
  1. AJOVY [Suspect]
     Active Substance: FREMANEZUMAB-VFRM
     Indication: Migraine
     Dosage: 225MILLIGRAM
     Route: 058
     Dates: start: 20210211
  2. BOTOX [Concomitant]
     Active Substance: ONABOTULINUMTOXINA
     Dates: start: 20200127
  3. OXYCODONE HYDROCHLORIDE [Concomitant]
     Active Substance: OXYCODONE HYDROCHLORIDE
     Dates: start: 20200211
  4. ARCOXIA [Concomitant]
     Active Substance: ETORICOXIB
  5. NAPROXEN [Concomitant]
     Active Substance: NAPROXEN
  6. ZOMIG [Concomitant]
     Active Substance: ZOLMITRIPTAN
     Dosage: ZOMIG 5 MG

REACTIONS (2)
  - Injection site rash [Not Recovered/Not Resolved]
  - Pruritus [Not Recovered/Not Resolved]

NARRATIVE: CASE EVENT DATE: 20210301
